FAERS Safety Report 10191161 (Version 2)
Quarter: 2014Q3

REPORT INFORMATION
  Report Type: Spontaneous
  Country: US (occurrence: US)
  Receive Date: 20140523
  Receipt Date: 20140707
  Transmission Date: 20150326
  Serious: Yes (Hospitalization, Other)
  Sender: FDA-Public Use
  Company Number: US-ROCHE-1404756

PATIENT
  Age: 33 Year
  Sex: Female

DRUGS (15)
  1. XOLAIR [Suspect]
     Active Substance: OMALIZUMAB
     Indication: PRODUCT USED FOR UNKNOWN INDICATION
     Route: 058
  2. FLONASE [Concomitant]
     Active Substance: FLUTICASONE PROPIONATE
     Dosage: 2 SPRAYS BY EACH NOSTRIL
     Route: 065
     Dates: start: 20130720
  3. SINGULAIR [Concomitant]
     Active Substance: MONTELUKAST SODIUM
     Dosage: AT BEDTIME
     Route: 048
  4. BACTRIM DS [Concomitant]
     Active Substance: SULFAMETHOXAZOLE\TRIMETHOPRIM
     Dosage: FORM STRENGTH: 800-160 MG
     Route: 048
     Dates: start: 20140625, end: 20140702
  5. FLEXERIL [Concomitant]
     Active Substance: CYCLOBENZAPRINE HYDROCHLORIDE
     Indication: MUSCLE SPASMS
     Route: 048
     Dates: start: 20140514
  6. ADVAIR DISKUS [Concomitant]
     Active Substance: FLUTICASONE PROPIONATE\SALMETEROL XINAFOATE
     Dosage: 500-50 MCG/DOSE. 180 PACKET?1 PUFF INAHLED BY MOUTH
     Route: 065
     Dates: start: 20130716
  7. NORCO [Concomitant]
     Active Substance: ACETAMINOPHEN\HYDROCODONE BITARTRATE
     Dosage: AT BEDTIME AS NEEDED
     Route: 048
     Dates: start: 20140623
  8. ALBUTEROL SULFATE. [Concomitant]
     Active Substance: ALBUTEROL SULFATE
     Dosage: INHALE 3 MLS (2.5 MG TOTAL) NEBULIZED EVERY 6 HR
     Route: 065
     Dates: start: 20130802
  9. CLARITIN [Concomitant]
     Active Substance: LORATADINE
     Route: 048
  10. SPIRIVA [Concomitant]
     Active Substance: TIOTROPIUM BROMIDE MONOHYDRATE
     Dosage: 1 CAPSULE INHALED BY MOUTH EVERY MORNING
     Route: 065
     Dates: start: 20130716
  11. VENTOLIN HFA [Concomitant]
     Active Substance: ALBUTEROL SULFATE
     Dosage: 2 PUFFS INHALED BY MOUTH 4 (FOUR) TIMES DAILY PRN
     Route: 065
     Dates: start: 20131203
  12. DUONEB [Concomitant]
     Active Substance: ALBUTEROL SULFATE\IPRATROPIUM BROMIDE
     Dosage: FORM STRENGTH: 2.5-0.5 MG/3 ML?INHALE 3 MLS NEBULIZED EVERY 4 (FOUR) HOURS PRN
     Route: 065
     Dates: start: 20130728
  13. IPRATROPIUM [Concomitant]
     Active Substance: IPRATROPIUM
     Indication: WHEEZING
     Dosage: INHALE 2.5 MLS (0.5 MG TOTAL) NEBULIZED EVERY 6 HR
     Route: 065
     Dates: start: 20130820
  14. NAPROSYN [Concomitant]
     Active Substance: NAPROXEN
     Route: 048
     Dates: start: 20140623
  15. FLONASE [Concomitant]
     Active Substance: FLUTICASONE PROPIONATE
     Dosage: 2 SPRAYS BY EACH NOSTRIL
     Route: 065
     Dates: start: 20130720

REACTIONS (3)
  - Anaphylactic reaction [Unknown]
  - Respiratory disorder [Unknown]
  - Skin disorder [Unknown]

NARRATIVE: CASE EVENT DATE: 20140416
